FAERS Safety Report 10204396 (Version 1)
Quarter: 2014Q2

REPORT INFORMATION
  Report Type: Spontaneous
  Country: US (occurrence: US)
  Receive Date: 20140529
  Receipt Date: 20140529
  Transmission Date: 20141212
  Serious: No
  Sender: FDA-Public Use
  Company Number: US-SANOFI-AVENTIS-2013SA059385

PATIENT
  Age: 73 Year
  Sex: Female

DRUGS (3)
  1. SOLOSTAR [Suspect]
  2. LANTUS SOLOSTAR [Suspect]
     Indication: TYPE 2 DIABETES MELLITUS
     Dosage: DOSE:56 UNIT(S)
     Route: 051
  3. LEVAQUIN [Concomitant]

REACTIONS (6)
  - Headache [Recovering/Resolving]
  - Injection site nodule [Unknown]
  - Nasopharyngitis [Unknown]
  - Visual impairment [Unknown]
  - Blood glucose increased [Unknown]
  - Extra dose administered [Unknown]
